FAERS Safety Report 4617446-9 (Version None)
Quarter: 2005Q1

REPORT INFORMATION
  Report Type: 
  Country: None (occurrence: None)
  Receive Date: 20050318
  Receipt Date: 20050316
  Transmission Date: 20050727
  Serious: Yes (Hospitalization)
  Sender: FDA-Public Use
  Company Number: 2004-BP-14382NB

PATIENT
  Age: 29 Year
  Sex: Male

DRUGS (9)
  1. VIRAMUNE [Suspect]
     Indication: HIV INFECTION
     Dosage: 200 MG (NR) PO
     Route: 048
     Dates: start: 20040206, end: 20040220
  2. KALETRA [Suspect]
     Indication: HIV INFECTION
     Dosage: 8 ANZ (NR) PO
     Route: 048
     Dates: start: 20040206
  3. CLARITH(CLARITHROMYCIN) (TA) [Concomitant]
     Indication: ATYPICAL MYCOBACTERIAL LYMPHADENITIS
     Dosage: 800 MG (NR) PO
     Route: 048
     Dates: start: 20020610
  4. BACTRIM [Concomitant]
  5. EBUTOL(ETHAMBUTOL)(TA) [Concomitant]
  6. PAXIL [Concomitant]
  7. LORAMET (LORMETAZEPAM)(TA) [Concomitant]
  8. RHYTHMY(RILMAZAFONE) (TA) [Concomitant]
  9. RIFABUTIN(RIFABUTIN) (KA) [Concomitant]

REACTIONS (5)
  - ANOREXIA [None]
  - HALLUCINATION, AUDITORY [None]
  - MANIA [None]
  - MEMORY IMPAIRMENT [None]
  - NAUSEA [None]
